FAERS Safety Report 17503182 (Version 1)
Quarter: 2020Q1

REPORT INFORMATION
  Report Type: Other
  Country: TR (occurrence: TR)
  Receive Date: 20200305
  Receipt Date: 20200305
  Transmission Date: 20200409
  Serious: Yes (Life-Threatening, Hospitalization, Disabling)
  Sender: FDA-Public Use
  Company Number: TR-NOSTRUM LABORATORIES, INC.-2081309

PATIENT
  Age: 3 Year
  Sex: Female

DRUGS (2)
  1. THEOPHYLLINE EXTENDED RELEASE [Suspect]
     Active Substance: THEOPHYLLINE
     Indication: ACCIDENTAL EXPOSURE TO PRODUCT
     Route: 048
  2. INDAPAMIDE. [Concomitant]
     Active Substance: INDAPAMIDE
     Route: 048

REACTIONS (8)
  - Status epilepticus [Recovered/Resolved with Sequelae]
  - Acute respiratory failure [Recovered/Resolved]
  - Hyperuricaemia [Recovered/Resolved]
  - Acute kidney injury [Recovered/Resolved]
  - Dehydration [Recovered/Resolved with Sequelae]
  - Brain injury [Not Recovered/Not Resolved]
  - Hypoglycaemia [Recovered/Resolved]
  - Rhabdomyolysis [Recovering/Resolving]
